FAERS Safety Report 18966442 (Version 1)
Quarter: 2021Q1

REPORT INFORMATION
  Report Type: Spontaneous
  Country: DE (occurrence: DE)
  Receive Date: 20210304
  Receipt Date: 20210304
  Transmission Date: 20210420
  Serious: Yes (Other)
  Sender: FDA-Public Use
  Company Number: DE-SUN PHARMACEUTICAL INDUSTRIES LTD-2021R1-283889

PATIENT
  Age: 31 Year
  Sex: Female

DRUGS (14)
  1. LETROZOLE. [Suspect]
     Active Substance: LETROZOLE
     Indication: DISEASE RECURRENCE
     Dosage: UNK
     Route: 065
  2. PALBOCICLIB [Suspect]
     Active Substance: PALBOCICLIB
     Indication: PALLIATIVE CARE
  3. LETROZOLE. [Suspect]
     Active Substance: LETROZOLE
     Indication: PALLIATIVE CARE
  4. PALBOCICLIB [Suspect]
     Active Substance: PALBOCICLIB
     Indication: DISEASE RECURRENCE
     Route: 065
  5. TAMOXIFEN [Suspect]
     Active Substance: TAMOXIFEN
     Indication: BREAST CANCER METASTATIC
     Dosage: UNK
     Route: 065
  6. LETROZOLE. [Suspect]
     Active Substance: LETROZOLE
     Indication: METASTASES TO LIVER
  7. DENOSUMAB [Suspect]
     Active Substance: DENOSUMAB
     Indication: PALLIATIVE CARE
  8. LETROZOLE. [Suspect]
     Active Substance: LETROZOLE
     Indication: METASTASES TO BONE
  9. PALBOCICLIB [Suspect]
     Active Substance: PALBOCICLIB
     Indication: METASTASES TO BONE
  10. TAMOXIFEN [Suspect]
     Active Substance: TAMOXIFEN
     Indication: INTRADUCTAL PROLIFERATIVE BREAST LESION
  11. DENOSUMAB [Suspect]
     Active Substance: DENOSUMAB
     Indication: DISEASE RECURRENCE
     Dosage: UNK
     Route: 065
  12. PALBOCICLIB [Suspect]
     Active Substance: PALBOCICLIB
     Indication: METASTASES TO LIVER
  13. DENOSUMAB [Suspect]
     Active Substance: DENOSUMAB
     Indication: METASTASES TO BONE
  14. DENOSUMAB [Suspect]
     Active Substance: DENOSUMAB
     Indication: METASTASES TO LIVER

REACTIONS (2)
  - Depression [Unknown]
  - Disease progression [Unknown]
